FAERS Safety Report 6780972-0 (Version None)
Quarter: 2010Q2

REPORT INFORMATION
  Report Type: 
  Country: None (occurrence: None)
  Receive Date: 20100621
  Receipt Date: 20100611
  Transmission Date: 20101027
  Serious: Yes (Death)
  Sender: FDA-Public Use
  Company Number: MX-ELI_LILLY_AND_COMPANY-MX201006003538

PATIENT
  Sex: Male

DRUGS (1)
  1. FORTEO [Suspect]
     Route: 065

REACTIONS (1)
  - RESPIRATORY ARREST [None]
